FAERS Safety Report 4431779-0 (Version None)
Quarter: 2004Q3

REPORT INFORMATION
  Report Type: 
  Country: None (occurrence: None)
  Receive Date: 20040819
  Receipt Date: 20040810
  Transmission Date: 20050211
  Serious: Yes (Hospitalization, Other)
  Sender: FDA-Public Use
  Company Number: HQWYE098214JUL04

PATIENT
  Age: 54 Year
  Sex: Male

DRUGS (9)
  1. RAPAMUNE [Suspect]
     Indication: IMMUNOSUPPRESSANT DRUG THERAPY
     Dosage: 2 MG 1X PER 1 DAY ORAL
     Route: 048
     Dates: start: 20040623
  2. RAPAMUNE [Suspect]
     Indication: PROPHYLAXIS AGAINST TRANSPLANT REJECTION
     Dosage: 2 MG 1X PER 1 DAY ORAL
     Route: 048
     Dates: start: 20040623
  3. PREDNISONE TAB [Concomitant]
  4. MYCOPHENOLATE MOFETIL (MYCOPHENOLATE MOFETIL) [Concomitant]
  5. HYDROCHLOROTHIAZIDE [Concomitant]
  6. SULFAMETHOXAZOLE + TRIMETHOPRIM [Concomitant]
  7. RANITIDINE [Concomitant]
  8. RANITIDINE [Concomitant]
  9. LAMIVUDINE (LAMIVUDINE) [Concomitant]

REACTIONS (5)
  - ANAL ABSCESS [None]
  - ANAL ULCER [None]
  - HAEMORRHOIDS [None]
  - IMMUNOSUPPRESSION [None]
  - STAPHYLOCOCCAL INFECTION [None]
